FAERS Safety Report 4975598-5 (Version None)
Quarter: 2006Q2

REPORT INFORMATION
  Report Type: 
  Country: None (occurrence: None)
  Receive Date: 20060411
  Receipt Date: 20060403
  Transmission Date: 20061013
  Serious: Yes (Hospitalization)
  Sender: FDA-Public Use
  Company Number: HQWYE408220MAR06

PATIENT
  Age: 56 Year
  Sex: Female

DRUGS (4)
  1. RAPAMUNE [Suspect]
     Indication: PROPHYLAXIS AGAINST TRANSPLANT REJECTION
     Dosage: 5 MG 1X PER 1 DAY ORAL
     Route: 048
     Dates: start: 20060224, end: 20060308
  2. GANCICLOVIR                  (GANCICLOVIR,) [Suspect]
  3. MYCOPHENOLATE MOFETIL [Suspect]
  4. PREDNISONE TAB [Suspect]

REACTIONS (8)
  - BONE MARROW TOXICITY [None]
  - COMPLICATIONS OF TRANSPLANTED KIDNEY [None]
  - GASTROINTESTINAL DISORDER [None]
  - GASTROINTESTINAL HAEMORRHAGE [None]
  - ILL-DEFINED DISORDER [None]
  - NEPHROCALCINOSIS [None]
  - RENAL TUBULAR NECROSIS [None]
  - THROMBOCYTOPENIA [None]
